FAERS Safety Report 8204416-7 (Version None)
Quarter: 2012Q1

REPORT INFORMATION
  Report Type: 
  Country: None (occurrence: None)
  Receive Date: 20120313
  Receipt Date: 20120313
  Transmission Date: 20120608
  Serious: No
  Sender: FDA-Public Use
  Company Number: None

PATIENT
  Age: 25 Year
  Sex: Female
  Weight: 73.935 kg

DRUGS (1)
  1. MICONAZOLE [Suspect]
     Indication: FUNGAL INFECTION
     Dosage: 1200 MG
     Route: 067
     Dates: start: 20120311, end: 20120311

REACTIONS (2)
  - APPLICATION SITE SWELLING [None]
  - APPLICATION SITE PAIN [None]
